FAERS Safety Report 5466711-4 (Version None)
Quarter: 2007Q3

REPORT INFORMATION
  Report Type: 
  Country: None (occurrence: None)
  Receive Date: 20070920
  Receipt Date: 20070911
  Transmission Date: 20080115
  Serious: Yes (Death, Hospitalization)
  Sender: FDA-Public Use
  Company Number: MEDI-0005984

PATIENT
  Sex: Female

DRUGS (4)
  1. SYNAGIS [Suspect]
     Indication: ANTIVIRAL PROPHYLAXIS
     Dosage: INTRAMUSCULAR, INTRAMUSCULAR, INTRAMUSCULAR, INTRAMUSCULAR
     Route: 030
     Dates: start: 20061018, end: 20070103
  2. SYNAGIS [Suspect]
     Indication: ANTIVIRAL PROPHYLAXIS
     Dosage: INTRAMUSCULAR, INTRAMUSCULAR, INTRAMUSCULAR, INTRAMUSCULAR
     Route: 030
     Dates: start: 20061008
  3. SYNAGIS [Suspect]
     Indication: ANTIVIRAL PROPHYLAXIS
     Dosage: INTRAMUSCULAR, INTRAMUSCULAR, INTRAMUSCULAR, INTRAMUSCULAR
     Route: 030
     Dates: start: 20061118
  4. SYNAGIS [Suspect]
     Indication: ANTIVIRAL PROPHYLAXIS
     Dosage: INTRAMUSCULAR, INTRAMUSCULAR, INTRAMUSCULAR, INTRAMUSCULAR
     Route: 030
     Dates: start: 20061206

REACTIONS (1)
  - DEATH [None]
